FAERS Safety Report 4818456-9 (Version None)
Quarter: 2005Q4

REPORT INFORMATION
  Report Type: 
  Country: None (occurrence: None)
  Receive Date: 20051102
  Receipt Date: 20050802
  Transmission Date: 20060501
  Serious: Yes (Death, Hospitalization)
  Sender: FDA-Public Use
  Company Number: US-BRISTOL-MYERS SQUIBB COMPANY-13060785

PATIENT
  Age: 64 Year
  Sex: Male

DRUGS (15)
  1. CETUXIMAB [Suspect]
     Indication: NON-SMALL CELL LUNG CANCER
     Dosage: DISCONTINUED FROM STUDY ON 07-JUN-05.
     Route: 042
     Dates: start: 20050531, end: 20050531
  2. CARBOPLATIN [Suspect]
     Indication: NON-SMALL CELL LUNG CANCER
     Dosage: DISCONTINUED FROM STUDY ON 07-JUN-05.
     Route: 042
     Dates: start: 20050524, end: 20050524
  3. TAXOTERE [Suspect]
     Indication: NON-SMALL CELL LUNG CANCER
     Dosage: DISCONTINUED FROM STUDY ON 07-JUN-05.
     Route: 042
     Dates: start: 20050524, end: 20050524
  4. NEXIUM [Concomitant]
  5. CARDIZEM [Concomitant]
  6. PLAVIX [Concomitant]
  7. PERCOCET [Concomitant]
  8. BUMETANIDE [Concomitant]
  9. SINEMET [Concomitant]
  10. AMBIEN [Concomitant]
  11. K-DUR 10 [Concomitant]
  12. DETROL LA [Concomitant]
  13. FORADIL [Concomitant]
     Route: 055
  14. VYTORIN [Concomitant]
  15. ALBUTEROL [Concomitant]

REACTIONS (2)
  - MALIGNANT NEOPLASM PROGRESSION [None]
  - PNEUMONIA [None]
